FAERS Safety Report 6573400-1 (Version None)
Quarter: 2010Q1

REPORT INFORMATION
  Report Type: 
  Country: None (occurrence: None)
  Receive Date: 20100208
  Receipt Date: 20100127
  Transmission Date: 20100710
  Serious: Yes (Other)
  Sender: FDA-Public Use
  Company Number: JP-PFIZER INC-2010012594

PATIENT
  Age: 65 Year
  Sex: Female

DRUGS (4)
  1. VFEND [Suspect]
     Indication: ASPERGILLOMA
     Dosage: UNK
     Route: 042
     Dates: start: 20100113, end: 20100118
  2. ZOSYN [Concomitant]
     Route: 042
     Dates: end: 20100119
  3. FERRO-GRADUMET [Concomitant]
     Route: 048
  4. MEDICON [Concomitant]
     Route: 048

REACTIONS (1)
  - INAPPROPRIATE ANTIDIURETIC HORMONE SECRETION [None]
